FAERS Safety Report 5652563-6 (Version None)
Quarter: 2008Q1

REPORT INFORMATION
  Report Type: 
  Country: None (occurrence: None)
  Receive Date: 20080306
  Receipt Date: 20080303
  Transmission Date: 20080703
  Serious: Yes (Other)
  Sender: FDA-Public Use
  Company Number: JP-BRISTOL-MYERS SQUIBB COMPANY-14094957

PATIENT
  Age: 58 Year
  Sex: Male

DRUGS (4)
  1. TAXOL [Suspect]
     Indication: LUNG NEOPLASM MALIGNANT
     Dosage: 07-NOV-07 - 04-DEC-07(4DAYS): 70 MG 2/1 MONTHS IVD.
     Route: 041
     Dates: start: 20071218, end: 20080204
  2. PARAPLATIN [Suspect]
     Indication: LUNG NEOPLASM MALIGNANT
     Dosage: 07-NOV-07 - 04-DEC-07(4DAYS):250 MG  2/1 MONTHS IVD.
     Route: 041
     Dates: start: 20071218, end: 20080204
  3. NAIXAN [Concomitant]
     Route: 048
     Dates: start: 20071107, end: 20080101
  4. CYTOTEC [Concomitant]
     Route: 048
     Dates: start: 20071107

REACTIONS (1)
  - TENDON PAIN [None]
